FAERS Safety Report 9640168 (Version 2)
Quarter: 2013Q4

REPORT INFORMATION
  Report Type: Spontaneous
  Country: US (occurrence: US)
  Receive Date: 20131023
  Receipt Date: 20131104
  Transmission Date: 20140711
  Serious: Yes (Other)
  Sender: FDA-Public Use
  Company Number: US-PFIZER INC-2013299731

PATIENT
  Age: 77 Year
  Sex: Male
  Weight: 62.59 kg

DRUGS (5)
  1. TOVIAZ [Suspect]
     Indication: HYPERTONIC BLADDER
     Dosage: 8 MG, 1X/DAY
     Route: 048
     Dates: start: 20131017
  2. TOVIAZ [Suspect]
     Dosage: 4 MG, UNK
  3. LABETALOL [Concomitant]
     Indication: HYPERTENSION
     Dosage: 400 MG, 2X/DAY
  4. DILTIAZEM [Concomitant]
     Indication: HYPERTENSION
     Dosage: 240 MG, 2X/DAY
  5. HYDRALAZINE [Concomitant]
     Indication: HYPERTENSION
     Dosage: 25 MG, 3X/DAY

REACTIONS (2)
  - Urinary retention [Not Recovered/Not Resolved]
  - Dysgeusia [Not Recovered/Not Resolved]
